FAERS Safety Report 18250363 (Version 2)
Quarter: 2025Q3

REPORT INFORMATION
  Report Type: Spontaneous
  Country: US (occurrence: US)
  Receive Date: 20200910
  Receipt Date: 20250721
  Transmission Date: 20251021
  Serious: No
  Sender: SANOFI AVENTIS
  Company Number: US-SA-2020SA112921

PATIENT
  Age: 13 Year
  Sex: Male

DRUGS (2)
  1. DUPIXENT [Suspect]
     Active Substance: DUPILUMAB
     Indication: Dermatitis contact
     Dosage: 300 MG, Q4W
     Route: 058
     Dates: start: 2018
  2. NEMLUVIO [Suspect]
     Active Substance: NEMOLIZUMAB-ILTO

REACTIONS (2)
  - Rash [Not Recovered/Not Resolved]
  - Off label use [Unknown]

NARRATIVE: CASE EVENT DATE: 20180101
